FAERS Safety Report 7340534-3 (Version None)
Quarter: 2011Q1

REPORT INFORMATION
  Report Type: 
  Country: None (occurrence: None)
  Receive Date: 20110309
  Receipt Date: 20110224
  Transmission Date: 20110831
  Serious: Yes (Other)
  Sender: FDA-Public Use
  Company Number: PHHY2011VE16254

PATIENT
  Age: 45 Year
  Sex: Male

DRUGS (3)
  1. LEPONEX [Suspect]
     Indication: SCHIZOPHRENIA
     Dosage: 400 MG, QD
     Dates: start: 20110101
  2. LEPONEX [Suspect]
     Dosage: 25 MG, QD
     Dates: start: 20110225
  3. LEPONEX [Suspect]
     Dosage: 400 MG, QD
     Dates: start: 20110223

REACTIONS (4)
  - SEDATION [None]
  - DIZZINESS [None]
  - INFECTION [None]
  - WHITE BLOOD CELL COUNT INCREASED [None]
